FAERS Safety Report 13520320 (Version 4)
Quarter: 2017Q2

REPORT INFORMATION
  Report Type: Report from Study
  Country: CA (occurrence: CA)
  Receive Date: 20170507
  Receipt Date: 20170630
  Transmission Date: 20170830
  Serious: Yes (Other)
  Sender: FDA-Public Use
  Company Number: CA-AMGEN-CANSL2017067044

PATIENT
  Age: 48 Year
  Sex: Female

DRUGS (3)
  1. ENBREL [Suspect]
     Active Substance: ETANERCEPT
     Indication: RHEUMATOID ARTHRITIS
     Dosage: 50 MG, UNK
     Route: 065
     Dates: start: 20161008, end: 201612
  2. REPATHA [Suspect]
     Active Substance: EVOLOCUMAB
     Indication: PRODUCT USED FOR UNKNOWN INDICATION
     Dosage: UNK
     Route: 065
  3. ENBREL [Suspect]
     Active Substance: ETANERCEPT
     Dosage: 50 MG, UNK
     Route: 065
     Dates: start: 2017

REACTIONS (8)
  - Vertigo [Recovered/Resolved]
  - Dizziness [Unknown]
  - Skin atrophy [Unknown]
  - Sinusitis [Unknown]
  - Skin haemorrhage [Recovering/Resolving]
  - Scratch [Unknown]
  - Adverse drug reaction [Unknown]
  - Haemorrhagic diathesis [Recovering/Resolving]

NARRATIVE: CASE EVENT DATE: 201612
